FAERS Safety Report 4280646-4 (Version None)
Quarter: 2004Q1

REPORT INFORMATION
  Report Type: 
  Country: None (occurrence: None)
  Receive Date: 20040127
  Receipt Date: 20040113
  Transmission Date: 20041129
  Serious: Yes (Death)
  Sender: FDA-Public Use
  Company Number: 2004-BP-00171BP

PATIENT
  Age: 28 Day
  Sex: Male

DRUGS (2)
  1. VIRAMUNE [Suspect]
     Indication: HIV INFECTION
     Dosage: SEE IMAGE
     Route: 015
     Dates: start: 20030613, end: 20031023
  2. COMBIVIR [Suspect]
     Indication: HIV INFECTION
     Dosage: 2 DAILY, IU
     Route: 015
     Dates: start: 20030613, end: 20031023

REACTIONS (7)
  - CONGENITAL INFECTION [None]
  - DRUG SCREEN POSITIVE [None]
  - GONORRHOEA [None]
  - MATERNAL DRUGS AFFECTING FOETUS [None]
  - NEONATAL DISORDER [None]
  - SMALL FOR DATES BABY [None]
  - STREPTOCOCCAL INFECTION [None]
